FAERS Safety Report 25080816 (Version 1)
Quarter: 2025Q1

REPORT INFORMATION
  Report Type: Spontaneous
  Country: CA (occurrence: CA)
  Receive Date: 20250315
  Receipt Date: 20250315
  Transmission Date: 20250409
  Serious: Yes (Other)
  Sender: DIFGEN PHARMACEUTICALS LLC
  Company Number: None

PATIENT

DRUGS (6)
  1. VALIUM [Suspect]
     Active Substance: DIAZEPAM
     Indication: Foetal exposure during pregnancy
     Route: 064
  2. BACLOFEN [Suspect]
     Active Substance: BACLOFEN
     Indication: Foetal exposure during pregnancy
     Route: 064
  3. SERTRALINE [Suspect]
     Active Substance: SERTRALINE HYDROCHLORIDE
     Indication: Foetal exposure during pregnancy
     Route: 064
  4. OXYBATE [Suspect]
     Active Substance: OXYBATE
     Indication: Foetal exposure during pregnancy
     Route: 064
  5. METHAMPHETAMINE [Suspect]
     Active Substance: METHAMPHETAMINE
     Indication: Foetal exposure during pregnancy
     Route: 064
  6. NICOTINE [Suspect]
     Active Substance: NICOTINE
     Indication: Foetal exposure during pregnancy
     Route: 064

REACTIONS (3)
  - Hyperbilirubinaemia neonatal [Unknown]
  - Premature baby [Unknown]
  - Foetal exposure during pregnancy [Unknown]
